FAERS Safety Report 10224981 (Version 1)
Quarter: 2014Q2

REPORT INFORMATION
  Report Type: Report from Study
  Country: DE (occurrence: DE)
  Receive Date: 20140609
  Receipt Date: 20140609
  Transmission Date: 20141212
  Serious: Yes (Hospitalization)
  Sender: FDA-Public Use
  Company Number: DE-TEVA-485625GER

PATIENT
  Age: 56 Year
  Sex: Female
  Weight: 57 kg

DRUGS (14)
  1. GEMCITABINE [Suspect]
     Dates: start: 20140410, end: 20140410
  2. GEMCITABINE [Suspect]
     Dates: start: 20140416, end: 20140416
  3. CEFPODOXIME [Suspect]
     Indication: SEPSIS
     Dates: start: 20140412, end: 20140423
  4. BAL8557 BLINDED [Suspect]
     Indication: SYSTEMIC CANDIDA
     Dosage: 750 ML DAILY; LOADING DOSE
     Route: 042
     Dates: start: 20140404, end: 20140405
  5. BAL8557 BLINDED [Suspect]
     Dosage: 250 ML DAILY; MAINTENANCE DOSE
     Route: 042
     Dates: start: 20140406, end: 20140413
  6. PANTOPRAZOL [Concomitant]
     Route: 065
     Dates: start: 201403
  7. OXYCODONE [Concomitant]
     Route: 065
     Dates: start: 20140324
  8. ENOXAPARIN SODIUM [Concomitant]
     Route: 065
     Dates: start: 20140327, end: 20140415
  9. METAMIZOLE SODIUM [Concomitant]
     Route: 065
     Dates: start: 20140402, end: 20140402
  10. DRONABINOL (THC) [Concomitant]
     Route: 065
     Dates: start: 20140404, end: 20140407
  11. GRANISETRON [Concomitant]
     Route: 065
     Dates: start: 20140416, end: 20140416
  12. DEXAMETHASONE [Concomitant]
     Route: 065
     Dates: start: 20140416, end: 20140416
  13. TEMAZEPAM [Concomitant]
     Route: 065
     Dates: start: 20140328, end: 20140402
  14. TAZOBACTAM [Concomitant]
     Route: 065
     Dates: start: 20140327, end: 20140410

REACTIONS (1)
  - Stevens-Johnson syndrome [Recovered/Resolved]
